FAERS Safety Report 22180909 (Version 26)
Quarter: 2025Q3

REPORT INFORMATION
  Report Type: Report from Study
  Country: US (occurrence: US)
  Receive Date: 20230406
  Receipt Date: 20250708
  Transmission Date: 20251020
  Serious: Yes (Hospitalization, Other)
  Sender: TAKEDA
  Company Number: US-TAKEDA-2023TUS026538

PATIENT
  Age: 59 Year
  Sex: Male
  Weight: 74 kg

DRUGS (68)
  1. HUMAN IMMUNOGLOBULIN G [Suspect]
     Active Substance: HUMAN IMMUNOGLOBULIN G
     Indication: Chronic inflammatory demyelinating polyradiculoneuropathy
     Dosage: UNK UNK, Q3WEEKS
  2. HUMAN IMMUNOGLOBULIN G [Suspect]
     Active Substance: HUMAN IMMUNOGLOBULIN G
     Dosage: 500 MILLIGRAM/KILOGRAM, Q3WEEKS
  3. HUMAN IMMUNOGLOBULIN G [Suspect]
     Active Substance: HUMAN IMMUNOGLOBULIN G
     Dosage: UNK UNK, QD
  4. HUMAN IMMUNOGLOBULIN G [Suspect]
     Active Substance: HUMAN IMMUNOGLOBULIN G
  5. HUMAN IMMUNOGLOBULIN G [Suspect]
     Active Substance: HUMAN IMMUNOGLOBULIN G
     Dosage: 40 GRAM, Q3WEEKS
  6. HUMAN IMMUNOGLOBULIN G [Suspect]
     Active Substance: HUMAN IMMUNOGLOBULIN G
  7. BENADRYL [Suspect]
     Active Substance: DIPHENHYDRAMINE HYDROCHLORIDE
     Indication: Product used for unknown indication
  8. ACETAMINOPHEN [Concomitant]
     Active Substance: ACETAMINOPHEN
  9. EPINEPHRINE [Concomitant]
     Active Substance: EPINEPHRINE
  10. CEFTRIAXONE [Concomitant]
     Active Substance: CEFTRIAXONE
  11. DULOXETINE HYDROCHLORIDE [Concomitant]
     Active Substance: DULOXETINE HYDROCHLORIDE
  12. ACETAMINOPHEN\HYDROCODONE [Concomitant]
     Active Substance: ACETAMINOPHEN\HYDROCODONE
  13. PREGABALIN [Concomitant]
     Active Substance: PREGABALIN
  14. SODIUM CHLORIDE [Concomitant]
     Active Substance: SODIUM CHLORIDE
  15. CYANOCOBALAMIN [Concomitant]
     Active Substance: CYANOCOBALAMIN
  16. PANTOPRAZOLE SODIUM [Concomitant]
     Active Substance: PANTOPRAZOLE SODIUM
  17. HUMIRA [Concomitant]
     Active Substance: ADALIMUMAB
  18. CLINDAMYCIN HYDROCHLORIDE [Concomitant]
     Active Substance: CLINDAMYCIN HYDROCHLORIDE
  19. PREDNISONE [Concomitant]
     Active Substance: PREDNISONE
  20. GABAPENTIN [Concomitant]
     Active Substance: GABAPENTIN
  21. BANOPHEN [Concomitant]
     Active Substance: DIPHENHYDRAMINE HYDROCHLORIDE
  22. LIDOCAINE [Concomitant]
     Active Substance: LIDOCAINE
  23. HEPARIN [Concomitant]
     Active Substance: HEPARIN SODIUM
  24. FLUTICASONE PROPIONATE [Concomitant]
     Active Substance: FLUTICASONE PROPIONATE
  25. SILDENAFIL CITRATE [Concomitant]
     Active Substance: SILDENAFIL CITRATE
  26. BUDESONIDE [Concomitant]
     Active Substance: BUDESONIDE
  27. ASCORBIC ACID [Concomitant]
     Active Substance: ASCORBIC ACID
  28. FENOFIBRATE [Concomitant]
     Active Substance: FENOFIBRATE
  29. VENTOLIN HFA [Concomitant]
     Active Substance: ALBUTEROL SULFATE
  30. DIPHENHYDRAMINE HYDROCHLORIDE [Concomitant]
     Active Substance: DIPHENHYDRAMINE HYDROCHLORIDE
  31. METRONIDAZOLE [Concomitant]
     Active Substance: METRONIDAZOLE
  32. BUTALBITAL, ACETAMINOPHEN, AND CAFFEINE [Concomitant]
     Active Substance: ACETAMINOPHEN\BUTALBITAL\CAFFEINE
  33. LORATADINE [Concomitant]
     Active Substance: LORATADINE
  34. TRIAMCINOLONE ACETONIDE [Concomitant]
     Active Substance: TRIAMCINOLONE ACETONIDE
  35. VANCOMYCIN HYDROCHLORIDE [Concomitant]
     Active Substance: VANCOMYCIN HYDROCHLORIDE
  36. MELOXICAM [Concomitant]
     Active Substance: MELOXICAM
  37. SUMATRIPTAN SUCCINATE [Concomitant]
     Active Substance: SUMATRIPTAN SUCCINATE
  38. TAMSULOSIN HYDROCHLORIDE [Concomitant]
     Active Substance: TAMSULOSIN HYDROCHLORIDE
  39. BACLOFEN [Concomitant]
     Active Substance: BACLOFEN
  40. MONTELUKAST SODIUM [Concomitant]
     Active Substance: MONTELUKAST SODIUM
  41. TRAZODONE HCL [Concomitant]
     Active Substance: TRAZODONE HYDROCHLORIDE
  42. TRIAMCINOLONE [Concomitant]
     Active Substance: TRIAMCINOLONE
  43. NYSTATIN [Concomitant]
     Active Substance: NYSTATIN
  44. TAMSULOSIN [Concomitant]
     Active Substance: TAMSULOSIN
  45. HYDROCHLOROTHIAZIDE [Concomitant]
     Active Substance: HYDROCHLOROTHIAZIDE
  46. HYDROCODONE [Concomitant]
     Active Substance: HYDROCODONE
  47. CYANOCOBALAMIN [Concomitant]
     Active Substance: CYANOCOBALAMIN
  48. ALBUTEROL [Concomitant]
     Active Substance: ALBUTEROL
  49. CEPHALEXIN [Concomitant]
     Active Substance: CEPHALEXIN
  50. AMOXICILLIN [Concomitant]
     Active Substance: AMOXICILLIN
  51. ALBUTEROL SULFATE [Concomitant]
     Active Substance: ALBUTEROL SULFATE
  52. METOPROLOL TARTRATE [Concomitant]
     Active Substance: METOPROLOL TARTRATE
  53. LYRICA [Concomitant]
     Active Substance: PREGABALIN
  54. MELATONIN [Concomitant]
     Active Substance: MELATONIN
  55. TRAMADOL HCL [Concomitant]
     Active Substance: TRAMADOL HYDROCHLORIDE
  56. TRAMADOL [Concomitant]
     Active Substance: TRAMADOL
  57. ZOLPIDEM [Concomitant]
     Active Substance: ZOLPIDEM TARTRATE
  58. SUCRALFATE [Concomitant]
     Active Substance: SUCRALFATE
  59. PANTOPRAZOLE [Concomitant]
     Active Substance: PANTOPRAZOLE
  60. MONTELUKAST [Concomitant]
     Active Substance: MONTELUKAST
  61. MEROPENEM [Concomitant]
     Active Substance: MEROPENEM
  62. DULOXETINE [Concomitant]
     Active Substance: DULOXETINE
  63. ZOLPIDEM TARTRATE [Concomitant]
     Active Substance: ZOLPIDEM TARTRATE
  64. BUTALBITAL [Concomitant]
     Active Substance: BUTALBITAL
  65. DIPHENHYDRAMINE [Concomitant]
     Active Substance: DIPHENHYDRAMINE
  66. CLINDAMYCIN [Concomitant]
     Active Substance: CLINDAMYCIN
  67. SILDENAFIL [Concomitant]
     Active Substance: SILDENAFIL
  68. VANCOMYCIN [Concomitant]
     Active Substance: VANCOMYCIN

REACTIONS (33)
  - Localised infection [Unknown]
  - Decubitus ulcer [Not Recovered/Not Resolved]
  - Urinary tract infection [Unknown]
  - Wound [Unknown]
  - Neuropathy peripheral [Not Recovered/Not Resolved]
  - Osteomyelitis [Unknown]
  - Infection [Unknown]
  - Struck by lightning [Unknown]
  - Limb injury [Not Recovered/Not Resolved]
  - Carpal tunnel syndrome [Unknown]
  - Euphoric mood [Unknown]
  - Buttock injury [Unknown]
  - Neuralgia [Recovering/Resolving]
  - Psoriasis [Unknown]
  - Sensory disturbance [Not Recovered/Not Resolved]
  - Sensory loss [Recovering/Resolving]
  - Product use in unapproved indication [Unknown]
  - Circumstance or information capable of leading to medication error [Unknown]
  - Insurance issue [Unknown]
  - Product use issue [Unknown]
  - Fall [Unknown]
  - Poor quality sleep [Unknown]
  - Dehydration [Unknown]
  - Poor venous access [Unknown]
  - Rib fracture [Unknown]
  - Feeling abnormal [Unknown]
  - Erythema [Unknown]
  - Paraesthesia [Unknown]
  - Chest discomfort [Unknown]
  - Hypertension [Not Recovered/Not Resolved]
  - Migraine [Unknown]
  - Headache [Unknown]
  - Back pain [Not Recovered/Not Resolved]

NARRATIVE: CASE EVENT DATE: 20230714
